FAERS Safety Report 19024933 (Version 1)
Quarter: 2021Q1

REPORT INFORMATION
  Report Type: Spontaneous
  Country: DE (occurrence: DE)
  Receive Date: 20210318
  Receipt Date: 20210318
  Transmission Date: 20210420
  Serious: Yes (Death, Other)
  Sender: FDA-Public Use
  Company Number: DE-AUROBINDO-AUR-APL-2019-051841

PATIENT
  Age: 78 Year
  Sex: Male

DRUGS (7)
  1. BENDAMUSTINE [Suspect]
     Active Substance: BENDAMUSTINE
     Indication: B-CELL LYMPHOMA
     Dosage: 90 MILLIGRAM/SQ. METER, 5 CYCLES
     Route: 042
     Dates: start: 201112, end: 201504
  2. DIGITOXIN [Concomitant]
     Active Substance: DIGITOXIN
     Indication: PRODUCT USED FOR UNKNOWN INDICATION
     Dosage: UNK
     Route: 065
     Dates: start: 2008
  3. ZEVALIN [Suspect]
     Active Substance: IBRITUMOMAB TIUXETAN
     Indication: B-CELL LYMPHOMA
     Dosage: 1.15 GIGABECQUEREL, SINGLE
     Route: 042
     Dates: start: 20121213, end: 20121213
  4. MABTHERA [Suspect]
     Active Substance: RITUXIMAB
     Dosage: UNKNOWN, SINGLE
     Route: 042
     Dates: start: 20150929, end: 20150929
  5. MABTHERA [Suspect]
     Active Substance: RITUXIMAB
     Indication: B-CELL LYMPHOMA
     Dosage: 375 MG/M2, UNK, 5 CYCLES
     Route: 042
     Dates: start: 201112, end: 201404
  6. MABTHERA [Suspect]
     Active Substance: RITUXIMAB
     Dosage: UNKNOWN, SINGLE, CONSOLIDATION TREATMENT WITH ZEVALIN
     Route: 042
     Dates: start: 2012, end: 2012
  7. RIVAROXABAN [Concomitant]
     Active Substance: RIVAROXABAN
     Indication: PRODUCT USED FOR UNKNOWN INDICATION
     Dosage: UNK
     Route: 048
     Dates: start: 2014

REACTIONS (6)
  - Acute myeloid leukaemia [Fatal]
  - Leukopenia [Unknown]
  - Thrombocytopenia [Unknown]
  - Oral candidiasis [Unknown]
  - Neutropenia [Recovered/Resolved]
  - Myelodysplastic syndrome [Fatal]

NARRATIVE: CASE EVENT DATE: 201302
